FAERS Safety Report 6810780-3 (Version None)
Quarter: 2010Q2

REPORT INFORMATION
  Report Type: 
  Country: None (occurrence: None)
  Receive Date: 20100630
  Receipt Date: 20080502
  Transmission Date: 20101027
  Serious: No
  Sender: FDA-Public Use
  Company Number: US-PFIZER INC-2008030851

PATIENT
  Sex: Male

DRUGS (5)
  1. GLYBURIDE [Suspect]
  2. METFORMIN HCL [Suspect]
  3. PRANDIN [Suspect]
  4. ZOCOR [Suspect]
  5. CYMBALTA [Suspect]

REACTIONS (1)
  - DRUG HYPERSENSITIVITY [None]
